FAERS Safety Report 8305415-7 (Version None)
Quarter: 2012Q2

REPORT INFORMATION
  Report Type: 
  Country: None (occurrence: None)
  Receive Date: 20120423
  Receipt Date: 20120418
  Transmission Date: 20120825
  Serious: Yes (Hospitalization, Other)
  Sender: FDA-Public Use
  Company Number: BE-ABBOTT-12P-013-0926959-00

PATIENT
  Sex: Female
  Weight: 64 kg

DRUGS (3)
  1. CARBOPLATINUM-TAXOL [Suspect]
     Indication: CHEMOTHERAPY
     Dates: start: 20101101
  2. HUMIRA [Suspect]
     Indication: RHEUMATOID ARTHRITIS
     Dates: start: 20100128, end: 20101001
  3. CARBO-GEMZAR [Suspect]
     Indication: CHEMOTHERAPY
     Dates: start: 20111101

REACTIONS (24)
  - HAEMORRHAGE [None]
  - VENTRICULAR FIBRILLATION [None]
  - DEEP VEIN THROMBOSIS [None]
  - ASCITES [None]
  - PERITONEAL NEOPLASM [None]
  - MALAISE [None]
  - LOCALISED INTRAABDOMINAL FLUID COLLECTION [None]
  - OSTEOPOROSIS [None]
  - DECREASED APPETITE [None]
  - RHEUMATOID ARTHRITIS [None]
  - URINARY TRACT INFECTION [None]
  - BREAST CANCER [None]
  - OVARIAN CANCER [None]
  - RETROPERITONEUM CYST [None]
  - ARRHYTHMIA SUPRAVENTRICULAR [None]
  - LYMPHOCELE [None]
  - CYSTITIS [None]
  - OVARIAN EPITHELIAL CANCER [None]
  - OSTEOPOROTIC FRACTURE [None]
  - OEDEMA PERIPHERAL [None]
  - INTESTINAL OBSTRUCTION [None]
  - SEROMA [None]
  - VOMITING [None]
  - CHILLS [None]
